FAERS Safety Report 5418610-1 (Version None)
Quarter: 2007Q3

REPORT INFORMATION
  Report Type: 
  Country: None (occurrence: None)
  Receive Date: 20070817
  Receipt Date: 20070807
  Transmission Date: 20080115
  Serious: Yes (Other)
  Sender: FDA-Public Use
  Company Number: DE-PFIZER INC-2006093088

PATIENT

DRUGS (3)
  1. ATORVASTATIN CALCIUM [Suspect]
     Indication: HYPERLIPIDAEMIA
     Route: 048
  2. CONCOR [Concomitant]
  3. BISOPROLOL [Concomitant]

REACTIONS (10)
  - BALANCE DISORDER [None]
  - DECREASED ACTIVITY [None]
  - DIZZINESS [None]
  - FALL [None]
  - HEPATIC PAIN [None]
  - MEMORY IMPAIRMENT [None]
  - MUSCULAR WEAKNESS [None]
  - RENAL PAIN [None]
  - ROAD TRAFFIC ACCIDENT [None]
  - WRIST FRACTURE [None]
